FAERS Safety Report 8622571 (Version 3)
Quarter: 2012Q4

REPORT INFORMATION
  Report Type: 
  Country: JP (occurrence: JP)
  Receive Date: 20120619
  Receipt Date: 20120924
  Transmission Date: 20130627
  Serious: Yes (Hospitalization)
  Sender: FDA-Public Use
  Company Number: JP-GLAXOSMITHKLINE-B0808822A

PATIENT
  Age: 26 Year
  Sex: Female

DRUGS (7)
  1. LAMICTAL [Suspect]
     Indication: AFFECTIVE DISORDER
     Dosage: 25MG Per day
     Route: 048
     Dates: start: 20120416, end: 20120422
  2. LAMICTAL [Suspect]
     Indication: AFFECTIVE DISORDER
     Dosage: 25MG Per day
     Route: 048
     Dates: start: 20120423, end: 20120507
  3. LAMICTAL [Suspect]
     Indication: AFFECTIVE DISORDER
     Dosage: 50MG Per day
     Route: 048
     Dates: start: 20120508, end: 20120604
  4. LIMAS [Suspect]
     Indication: AFFECTIVE DISORDER
     Dosage: 200MG Twice per day
     Route: 048
     Dates: start: 201204, end: 20120604
  5. VALPROIC ACID [Suspect]
     Indication: AFFECTIVE DISORDER
     Dosage: 300MG Twice per day
     Route: 048
     Dates: end: 20120604
  6. LEXOTAN [Suspect]
     Indication: AFFECTIVE DISORDER
     Dosage: 2MG Twice per day
     Route: 048
     Dates: start: 201205, end: 20120604
  7. UNSPECIFIED INGREDIENT [Suspect]
     Indication: CONTRACEPTION
     Route: 048
     Dates: start: 201205, end: 20120604

REACTIONS (7)
  - Erythema multiforme [Recovered/Resolved]
  - Drug eruption [Recovered/Resolved]
  - Erythema [Unknown]
  - Cheilitis [Unknown]
  - Oral mucosal erythema [Unknown]
  - Rash generalised [Recovering/Resolving]
  - Lymphocyte stimulation test positive [None]
